FAERS Safety Report 23494035 (Version 2)
Quarter: 2024Q1

REPORT INFORMATION
  Report Type: Spontaneous
  Country: US (occurrence: US)
  Receive Date: 20240207
  Receipt Date: 20240207
  Transmission Date: 20240410
  Serious: Yes (Other)
  Sender: FDA-Public Use
  Company Number: US-PFIZER INC-202400030125

PATIENT
  Age: 50 Year
  Sex: Female

DRUGS (1)
  1. DEPO-PROVERA [Suspect]
     Active Substance: MEDROXYPROGESTERONE ACETATE
     Indication: Contraception
     Dosage: 150 MG, EVERY 3 MONTHS
     Dates: start: 20240112, end: 20240112

REACTIONS (5)
  - Amenorrhoea [Unknown]
  - Vaginal haemorrhage [Unknown]
  - Product administered at inappropriate site [Unknown]
  - Arthralgia [Unknown]
  - Gait disturbance [Unknown]
